FAERS Safety Report 14640977 (Version 2)
Quarter: 2018Q3

REPORT INFORMATION
  Report Type: Spontaneous
  Country: US (occurrence: US)
  Receive Date: 20180315
  Receipt Date: 20180716
  Transmission Date: 20181010
  Serious: No
  Sender: FDA-Public Use
  Company Number: US-PFIZER INC-2018104997

PATIENT
  Age: 72 Year
  Sex: Female

DRUGS (11)
  1. GABAPENTIN. [Suspect]
     Active Substance: GABAPENTIN
     Dosage: 300 MG, 1X/DAY
  2. CALCIUM [Concomitant]
     Active Substance: CALCIUM
     Dosage: UNK
     Dates: start: 2015
  3. VITAMIN D [Concomitant]
     Active Substance: CHOLECALCIFEROL
     Dosage: UNK
     Dates: start: 2015
  4. VITAMIN B12 [Concomitant]
     Active Substance: CYANOCOBALAMIN
     Dosage: UNK
     Dates: start: 2015
  5. GABAPENTIN. [Suspect]
     Active Substance: GABAPENTIN
     Indication: TONGUE DISCOMFORT
     Dosage: 300 MG, 1X/DAY (ONE PILL EACH DAY)
  6. AMLODIPINE [Concomitant]
     Active Substance: AMLODIPINE BESYLATE
     Dosage: UNK
     Dates: start: 2016
  7. GABAPENTIN. [Suspect]
     Active Substance: GABAPENTIN
     Dosage: 300 MG, 3X/DAY
     Dates: start: 20180116, end: 20180124
  8. OMEGA 3 [Concomitant]
     Active Substance: OMEGA-3 FATTY ACIDS
     Dosage: UNK
     Dates: start: 2015
  9. GABAPENTIN. [Suspect]
     Active Substance: GABAPENTIN
     Indication: HYPOAESTHESIA ORAL
     Dosage: 300 MG, 2X/DAY (THE FOURTH DAY, SHE TOOK TWO, ONE IN THE MORNING AND ONE IN THE EVENING)
  10. VITAMIN E [Concomitant]
     Active Substance: .ALPHA.-TOCOPHEROL
     Dosage: UNK
     Dates: start: 2015
  11. ATORVASTATIN [Concomitant]
     Active Substance: ATORVASTATIN
     Dosage: UNK
     Dates: start: 2015

REACTIONS (10)
  - Joint swelling [Unknown]
  - Dizziness [Unknown]
  - Vision blurred [Unknown]
  - Product use in unapproved indication [Not Recovered/Not Resolved]
  - Peripheral swelling [Unknown]
  - Myalgia [Not Recovered/Not Resolved]
  - Coordination abnormal [Unknown]
  - Nocturia [Not Recovered/Not Resolved]
  - Dyskinesia [Unknown]
  - Fatigue [Unknown]

NARRATIVE: CASE EVENT DATE: 201706
